FAERS Safety Report 12797166 (Version 4)
Quarter: 2017Q1

REPORT INFORMATION
  Report Type: Spontaneous
  Country: US (occurrence: US)
  Receive Date: 20160930
  Receipt Date: 20170123
  Transmission Date: 20170428
  Serious: No
  Sender: FDA-Public Use
  Company Number: US-PFIZER INC-2016454303

PATIENT
  Age: 75 Year
  Sex: Female

DRUGS (2)
  1. LETROZOLE. [Suspect]
     Active Substance: LETROZOLE
     Dosage: UNK
  2. IBRANCE [Suspect]
     Active Substance: PALBOCICLIB
     Dosage: 125 MG, CYCLIC (21 DAYS ON 7 DAYS OFF)
     Dates: start: 20160927

REACTIONS (6)
  - Feeling cold [Unknown]
  - Abdominal discomfort [Unknown]
  - Dry skin [Unknown]
  - Throat irritation [Unknown]
  - Epistaxis [Recovered/Resolved]
  - Pruritus [Unknown]
